FAERS Safety Report 5144582-3 (Version None)
Quarter: 2006Q4

REPORT INFORMATION
  Report Type: 
  Country: None (occurrence: None)
  Receive Date: 20061031
  Receipt Date: 20061018
  Transmission Date: 20070319
  Serious: Yes (Other)
  Sender: FDA-Public Use
  Company Number: 2006096304

PATIENT
  Sex: Female

DRUGS (2)
  1. VORICONAZOLE (VORICONAZOLE) [Suspect]
     Indication: SINUSITIS ASPERGILLUS
  2. AMBISOME [Suspect]

REACTIONS (2)
  - FUNGAL INFECTION [None]
  - NEPHROPATHY TOXIC [None]
